FAERS Safety Report 4387855-4 (Version None)
Quarter: 2004Q2

REPORT INFORMATION
  Report Type: 
  Country: None (occurrence: None)
  Receive Date: 20040630
  Receipt Date: 20040621
  Transmission Date: 20050107
  Serious: Yes (Hospitalization)
  Sender: FDA-Public Use
  Company Number: PHFR2004GB02580

PATIENT
  Age: 50 Year
  Sex: Female

DRUGS (2)
  1. CLOZARIL [Suspect]
     Indication: MEDICATION ERROR
     Dosage: 200MG IN ERROR
     Dates: start: 20040620
  2. CO-CODAMOL [Concomitant]

REACTIONS (3)
  - ACCIDENTAL EXPOSURE [None]
  - DEPRESSED LEVEL OF CONSCIOUSNESS [None]
  - MEDICATION ERROR [None]
